FAERS Safety Report 5469806-4 (Version None)
Quarter: 2007Q3

REPORT INFORMATION
  Report Type: 
  Country: None (occurrence: None)
  Receive Date: 20070927
  Receipt Date: 20070918
  Transmission Date: 20080115
  Serious: Yes (Hospitalization)
  Sender: FDA-Public Use
  Company Number: US-AMGEN-US231540

PATIENT
  Sex: Male
  Weight: 59.5 kg

DRUGS (2)
  1. PROCRIT [Suspect]
     Indication: ANAEMIA
     Route: 058
     Dates: start: 20031202, end: 20070207
  2. BLOOD CELLS, PACKED HUMAN [Concomitant]

REACTIONS (3)
  - INFLUENZA LIKE ILLNESS [None]
  - SICKLE CELL ANAEMIA WITH CRISIS [None]
  - THERAPEUTIC RESPONSE DECREASED [None]
